FAERS Safety Report 5830773-2 (Version None)
Quarter: 2008Q3

REPORT INFORMATION
  Report Type: 
  Country: None (occurrence: None)
  Receive Date: 20080801
  Receipt Date: 20071115
  Transmission Date: 20090109
  Serious: No
  Sender: FDA-Public Use
  Company Number: US-BRISTOL-MYERS SQUIBB COMPANY-13984364

PATIENT
  Age: 83 Year
  Sex: Female
  Weight: 56 kg

DRUGS (8)
  1. COUMADIN [Suspect]
     Dates: start: 20020101
  2. TOPROL-XL [Concomitant]
  3. LASIX [Concomitant]
  4. PREVACID [Concomitant]
  5. LEVOXYL [Concomitant]
  6. DIGITEK [Concomitant]
  7. CLONIDINE [Concomitant]
  8. TEVETEN [Concomitant]

REACTIONS (2)
  - DIZZINESS [None]
  - FALL [None]
